FAERS Safety Report 10120570 (Version 2)
Quarter: 2014Q4

REPORT INFORMATION
  Report Type: Other
  Country: US (occurrence: US)
  Receive Date: 20140425
  Receipt Date: 20141124
  Transmission Date: 20150528
  Serious: Yes (Other)
  Sender: FDA-Public Use
  Company Number: US-GSKPPD-2014GSK008655

PATIENT
  Age: 64 Year
  Sex: Male

DRUGS (8)
  1. SERZONE [Concomitant]
     Active Substance: NEFAZODONE HYDROCHLORIDE
  2. BENADRYL [Concomitant]
     Active Substance: DIPHENHYDRAMINE HYDROCHLORIDE
  3. LESCOL [Concomitant]
     Active Substance: FLUVASTATIN SODIUM
  4. AMARYL [Concomitant]
     Active Substance: GLIMEPIRIDE
  5. ASPIRIN. [Concomitant]
     Active Substance: ASPIRIN
  6. AVANDIA [Suspect]
     Active Substance: ROSIGLITAZONE MALEATE
     Indication: DIABETES MELLITUS
     Route: 048
  7. XALATAN [Concomitant]
     Active Substance: LATANOPROST
  8. TIMOLOL [Concomitant]
     Active Substance: TIMOLOL

REACTIONS (1)
  - Myocardial infarction [Recovered/Resolved]

NARRATIVE: CASE EVENT DATE: 20031112
